FAERS Safety Report 9164576 (Version 1)
Quarter: 2013Q1

REPORT INFORMATION
  Report Type: Spontaneous
  Country: CO (occurrence: None)
  Receive Date: 20130201
  Receipt Date: 20130201
  Transmission Date: 20140127
  Serious: Yes (Other)
  Sender: FDA-Public Use
  Company Number: DSU-2013-00655

PATIENT
  Age: 70 Year
  Sex: Female

DRUGS (4)
  1. OLMETEC [Suspect]
     Indication: HYPERTENSION
     Route: 048
     Dates: start: 2003
  2. RYTMONORM [Concomitant]
  3. GINKO BILOBA EXTRACT [Concomitant]
  4. CARDIOASPIRINA (ACETYLSALICYLIC ACID) (TABLET) (ACETYLSALICYLIC) [Concomitant]

REACTIONS (3)
  - Arrhythmia [None]
  - Pulmonary hypertension [None]
  - Apnoea [None]
